FAERS Safety Report 7278227-3 (Version None)
Quarter: 2010Q4

REPORT INFORMATION
  Report Type: 
  Country: None (occurrence: None)
  Receive Date: 20101206
  Receipt Date: 20101028
  Transmission Date: 20110411
  Serious: No
  Sender: FDA-Public Use
  Company Number: 2010SP057606

PATIENT
  Sex: Male

DRUGS (1)
  1. SAPHRIS [Suspect]
     Indication: PRODUCT USED FOR UNKNOWN INDICATION
     Dosage: 5 MG;ONCE;SL
     Route: 060

REACTIONS (4)
  - HYPERHIDROSIS [None]
  - INSOMNIA [None]
  - RESTLESS LEGS SYNDROME [None]
  - SOMNOLENCE [None]
